FAERS Safety Report 5288522-5 (Version None)
Quarter: 2007Q2

REPORT INFORMATION
  Report Type: 
  Country: None (occurrence: None)
  Receive Date: 20070405
  Receipt Date: 20070327
  Transmission Date: 20071010
  Serious: Yes (Other)
  Sender: FDA-Public Use
  Company Number: HQWYE870127MAR07

PATIENT
  Sex: Female

DRUGS (1)
  1. TRIQUILAR-21 [Suspect]
     Indication: ORAL CONTRACEPTION
     Route: 048
     Dates: start: 20051101, end: 20060830

REACTIONS (9)
  - ABORTION THREATENED [None]
  - ANTEPARTUM HAEMORRHAGE [None]
  - BLOOD PRESSURE INCREASED [None]
  - DRUG EXPOSURE DURING PREGNANCY [None]
  - INAPPROPRIATE SCHEDULE OF DRUG ADMINISTRATION [None]
  - METRORRHAGIA [None]
  - PREGNANCY ON ORAL CONTRACEPTIVE [None]
  - PREMATURE SEPARATION OF PLACENTA [None]
  - UNINTENDED PREGNANCY [None]
